FAERS Safety Report 5606544-9 (Version None)
Quarter: 2008Q1

REPORT INFORMATION
  Report Type: 
  Country: None (occurrence: None)
  Receive Date: 20080129
  Receipt Date: 20080118
  Transmission Date: 20080703
  Serious: Yes (Disabling)
  Sender: FDA-Public Use
  Company Number: JP-ASTRAZENECA-2008AP00117

PATIENT
  Age: 66 Year
  Sex: Male
  Weight: 54.2 kg

DRUGS (14)
  1. MEROPENEM [Suspect]
     Indication: PSOAS ABSCESS
     Route: 042
     Dates: start: 20070119, end: 20070131
  2. MEROPENEM [Suspect]
     Indication: PYELONEPHRITIS ACUTE
     Route: 042
     Dates: start: 20070119, end: 20070131
  3. MEROPENEM [Suspect]
     Route: 042
     Dates: start: 20070209, end: 20070212
  4. MEROPENEM [Suspect]
     Route: 042
     Dates: start: 20070209, end: 20070212
  5. VOLTAREN [Suspect]
     Indication: BACK PAIN
     Route: 054
     Dates: start: 20070117
  6. LOXONIN [Suspect]
     Indication: BACK PAIN
     Route: 048
     Dates: start: 20070207
  7. MENAMIN [Suspect]
     Indication: BACK PAIN
     Route: 030
     Dates: start: 20070117
  8. MENAMIN [Suspect]
     Route: 030
     Dates: start: 20070211, end: 20070211
  9. CEFAMEZIN [Suspect]
     Indication: PSOAS ABSCESS
     Route: 042
     Dates: start: 20070312, end: 20070319
  10. CEFAMEZIN [Suspect]
     Route: 042
     Dates: start: 20070320, end: 20070404
  11. CRAVIT [Concomitant]
     Indication: PSOAS ABSCESS
     Route: 048
     Dates: start: 20070124, end: 20070127
  12. LASIX [Concomitant]
     Indication: OEDEMA
     Route: 048
     Dates: start: 20070201
  13. TIENAM [Concomitant]
     Indication: PSOAS ABSCESS
     Route: 042
     Dates: start: 20070213, end: 20070215
  14. TIENAM [Concomitant]
     Route: 042
     Dates: start: 20070216, end: 20070312

REACTIONS (1)
  - NEPHRITIS INTERSTITIAL [None]
